FAERS Safety Report 7322996-0 (Version None)
Quarter: 2011Q1

REPORT INFORMATION
  Report Type: 
  Country: None (occurrence: None)
  Receive Date: 20110301
  Receipt Date: 20110218
  Transmission Date: 20110831
  Serious: Yes (Hospitalization, Other)
  Sender: FDA-Public Use
  Company Number: PHHY2011FR09142

PATIENT
  Sex: Female
  Weight: 53 kg

DRUGS (6)
  1. EXELON [Suspect]
     Dosage: 9.5 MG, UNK
     Route: 062
     Dates: start: 20100709, end: 20100801
  2. MIANSERIN [Concomitant]
     Dosage: UNK
     Dates: start: 20100601
  3. DIFFU K [Concomitant]
  4. TRANDOLAPRIL [Concomitant]
     Dosage: UNK
  5. EXELON [Suspect]
     Indication: DEMENTIA ALZHEIMER'S TYPE
     Dosage: 4.6 MG, UNK
     Route: 062
  6. ABILIFY [Concomitant]
     Dosage: UNK
     Dates: start: 20100601

REACTIONS (3)
  - APATHY [None]
  - WEIGHT DECREASED [None]
  - DECREASED APPETITE [None]
